FAERS Safety Report 19002573 (Version 1)
Quarter: 2021Q1

REPORT INFORMATION
  Report Type: Spontaneous
  Country: US (occurrence: US)
  Receive Date: 20210312
  Receipt Date: 20210312
  Transmission Date: 20210420
  Serious: Yes (Life-Threatening, Other)
  Sender: FDA-Public Use
  Company Number: None

PATIENT
  Age: 42 Year
  Sex: Male
  Weight: 131.5 kg

DRUGS (2)
  1. COVID?19 VACCINE NOS. [Suspect]
     Active Substance: COVID-19 VACCINE NOS
  2. BAMLANIVIMAB. [Suspect]
     Active Substance: BAMLANIVIMAB
     Indication: COVID-19
     Dosage: ?          OTHER FREQUENCY:ONCE;?
     Route: 042
     Dates: start: 20210302, end: 20210302

REACTIONS (15)
  - Nodal rhythm [None]
  - Cough [None]
  - Pyrexia [None]
  - Eye movement disorder [None]
  - Pain in extremity [None]
  - Headache [None]
  - Hypotension [None]
  - Diarrhoea [None]
  - Infusion related reaction [None]
  - Fatigue [None]
  - Mental status changes [None]
  - Bradycardia [None]
  - Musculoskeletal chest pain [None]
  - SARS-CoV-2 test positive [None]
  - Vomiting [None]

NARRATIVE: CASE EVENT DATE: 20210302
